FAERS Safety Report 10600124 (Version 1)
Quarter: 2014Q4

REPORT INFORMATION
  Report Type: Spontaneous
  Country: DE (occurrence: DE)
  Receive Date: 20141122
  Receipt Date: 20141122
  Transmission Date: 20150529
  Serious: Yes (Congenital Anomaly, Other)
  Sender: FDA-Public Use
  Company Number: DE-DRREDDYS-GER/GER/14/0044501

PATIENT
  Age: 1 Day
  Sex: Female
  Weight: 2.79 kg

DRUGS (6)
  1. RAMIPRIL. [Concomitant]
     Active Substance: RAMIPRIL
     Indication: PRODUCT USED FOR UNKNOWN INDICATION
     Route: 064
     Dates: start: 20131019, end: 20131117
  2. VACCINE HEPATITIS A AND HEPATITIS B [Concomitant]
     Indication: PRODUCT USED FOR UNKNOWN INDICATION
     Route: 064
  3. FOLSAEURE [Concomitant]
     Active Substance: FOLIC ACID
     Indication: PRODUCT USED FOR UNKNOWN INDICATION
     Route: 064
     Dates: start: 20140211, end: 20140211
  4. LAMICTAL [Suspect]
     Active Substance: LAMOTRIGINE
     Indication: PRODUCT USED FOR UNKNOWN INDICATION
     Dosage: 1050 MG/D (BIS 600)
     Route: 064
     Dates: start: 20131019, end: 20140714
  5. METOPROLOL [Suspect]
     Active Substance: METOPROLOL
     Indication: PRODUCT USED FOR UNKNOWN INDICATION
     Route: 064
     Dates: start: 20131118, end: 20140209
  6. METHYLDOPA. [Concomitant]
     Active Substance: METHYLDOPA
     Indication: PRODUCT USED FOR UNKNOWN INDICATION
     Route: 064
     Dates: start: 20140210, end: 20140714

REACTIONS (5)
  - Cyst [Unknown]
  - Patent ductus arteriosus [Unknown]
  - Atrial septal defect [Unknown]
  - Foetal exposure during pregnancy [Unknown]
  - Ventricular septal defect [Unknown]

NARRATIVE: CASE EVENT DATE: 20140714
